FAERS Safety Report 6628785-4 (Version None)
Quarter: 2010Q1

REPORT INFORMATION
  Report Type: 
  Country: None (occurrence: None)
  Receive Date: 20100309
  Receipt Date: 20100302
  Transmission Date: 20100710
  Serious: Yes (Other)
  Sender: FDA-Public Use
  Company Number: A0832805A

PATIENT
  Age: 49 Year
  Sex: Female

DRUGS (1)
  1. UREA PEROXIDE [Suspect]
     Indication: DRUG USE FOR UNKNOWN INDICATION
     Dosage: AURAL
     Route: 001
     Dates: start: 20090301

REACTIONS (2)
  - DEAFNESS UNILATERAL [None]
  - TINNITUS [None]
